FAERS Safety Report 12535011 (Version 1)
Quarter: 2016Q3

REPORT INFORMATION
  Report Type: Spontaneous
  Country: JP (occurrence: JP)
  Receive Date: 20160707
  Receipt Date: 20160707
  Transmission Date: 20161109
  Serious: Yes (Other)
  Sender: FDA-Public Use
  Company Number: JP-CIPLA LTD.-2016JP08490

PATIENT

DRUGS (3)
  1. NEDAPLATIN [Suspect]
     Active Substance: NEDAPLATIN
     Indication: NEUROENDOCRINE CARCINOMA
     Dosage: 50 MG/M2, ON DAY 1 AND 8
     Route: 065
  2. DEXAMETHASONE. [Concomitant]
     Active Substance: DEXAMETHASONE
     Dosage: 8 MG, UNK
     Route: 042
  3. IRINOTECAN [Suspect]
     Active Substance: IRINOTECAN
     Indication: NEUROENDOCRINE CARCINOMA
     Dosage: 50 MG/M2, ON DAY 1 AND 8, EVERY FOUR WEEKS
     Route: 065

REACTIONS (1)
  - Duodenal perforation [Recovering/Resolving]
